FAERS Safety Report 5384202-6 (Version None)
Quarter: 2007Q3

REPORT INFORMATION
  Report Type: 
  Country: None (occurrence: None)
  Receive Date: 20070711
  Receipt Date: 20070702
  Transmission Date: 20080115
  Serious: Yes (Hospitalization)
  Sender: FDA-Public Use
  Company Number: B0477132A

PATIENT
  Age: 62 Year
  Sex: Female

DRUGS (6)
  1. ARIXTRA [Suspect]
     Indication: PHLEBITIS
     Dosage: 7.5MG PER DAY
     Route: 058
     Dates: start: 20070526, end: 20070527
  2. ASPEGIC 325 [Suspect]
     Route: 048
     Dates: start: 20070516, end: 20070526
  3. IRBESARTAN [Concomitant]
     Dosage: 300MG IN THE MORNING
  4. OGAST [Concomitant]
     Dosage: 30MG AT NIGHT
  5. TOPLEXIL [Concomitant]
     Dosage: 1UNIT AT NIGHT
  6. LYSOPAINE [Concomitant]

REACTIONS (3)
  - ACTIVATED PARTIAL THROMBOPLASTIN TIME PROLONGED [None]
  - GAIT DISTURBANCE [None]
  - HAEMATOMA [None]
